FAERS Safety Report 26103585 (Version 1)
Quarter: 2025Q4

REPORT INFORMATION
  Report Type: Report from Study
  Country: CA (occurrence: CA)
  Receive Date: 20251129
  Receipt Date: 20251129
  Transmission Date: 20260117
  Serious: Yes (Hospitalization)
  Sender: ABBVIE
  Company Number: CA-ABBVIE-6567232

PATIENT
  Sex: Female

DRUGS (1)
  1. SKYRIZI [Suspect]
     Active Substance: RISANKIZUMAB-RZAA
     Indication: Crohn^s disease
     Dosage: INFUSE 600 MG (=1 VIAL) INTRAVENOUS LY AT WEEK 0, WEEK 4, AND ?WEEK
     Route: 042

REACTIONS (1)
  - Diabetes mellitus [Unknown]
